FAERS Safety Report 17531041 (Version 1)
Quarter: 2020Q1

REPORT INFORMATION
  Report Type: Spontaneous
  Country: US (occurrence: US)
  Receive Date: 20200311
  Receipt Date: 20200311
  Transmission Date: 20200409
  Serious: Yes (Hospitalization, Other)
  Sender: FDA-Public Use
  Company Number: US-NOVOPROD-717080

PATIENT
  Age: 80 Year
  Sex: Male

DRUGS (1)
  1. NORDITROPIN [Suspect]
     Active Substance: SOMATROPIN
     Indication: PARKINSON^S DISEASE
     Dosage: 0.3 MG
     Route: 058
     Dates: start: 201901, end: 2019

REACTIONS (5)
  - Parkinson^s disease [Unknown]
  - Product dispensing error [Unknown]
  - Heart valve replacement [Unknown]
  - Product use in unapproved indication [Recovered/Resolved]
  - Expired product administered [Unknown]

NARRATIVE: CASE EVENT DATE: 2019
